FAERS Safety Report 9026367 (Version 2)
Quarter: 2013Q1

REPORT INFORMATION
  Report Type: Spontaneous
  Country: GB (occurrence: None)
  Receive Date: 20130104
  Receipt Date: 20130114
  Transmission Date: 20140127
  Serious: Yes (Hospitalization)
  Sender: FDA-Public Use
  Company Number: 2012-23243

PATIENT
  Age: 55 Year
  Sex: Female

DRUGS (3)
  1. ACETAMINOPHEN-CODEINE PHOSPHATE (UNKNOWN) [Suspect]
     Indication: PAIN
  2. SOLPADEINE [Suspect]
     Indication: PAIN
  3. SUTENT [Suspect]
     Indication: RENAL CANCER METASTATIC
     Dates: start: 2010

REACTIONS (19)
  - Skin exfoliation [None]
  - Constipation [None]
  - Nausea [None]
  - Rash [None]
  - Somnolence [None]
  - Fatigue [None]
  - Diarrhoea [None]
  - Asthenia [None]
  - Fluid retention [None]
  - Deafness [None]
  - Platelet count decreased [None]
  - Asthenia [None]
  - Weight increased [None]
  - Epistaxis [None]
  - Electrolyte imbalance [None]
  - Hair colour changes [None]
  - Oedema [None]
  - Blood sodium increased [None]
  - Platelet count decreased [None]
